FAERS Safety Report 9363267 (Version 1)
Quarter: 2013Q2

REPORT INFORMATION
  Report Type: Spontaneous
  Country: US (occurrence: US)
  Receive Date: 20130624
  Receipt Date: 20130624
  Transmission Date: 20140414
  Serious: No
  Sender: FDA-Public Use
  Company Number: US-BIOGENIDEC-2013BI055142

PATIENT
  Age: 50 Year
  Sex: Male

DRUGS (1)
  1. TYSABRI [Suspect]
     Indication: MULTIPLE SCLEROSIS
     Route: 042
     Dates: start: 20110919

REACTIONS (7)
  - Infusion site scar [Not Recovered/Not Resolved]
  - Stress [Unknown]
  - Poor venous access [Unknown]
  - Energy increased [Unknown]
  - Infusion site bruising [Not Recovered/Not Resolved]
  - Fatigue [Recovered/Resolved with Sequelae]
  - Multiple sclerosis relapse [Not Recovered/Not Resolved]
